FAERS Safety Report 16891351 (Version 1)
Quarter: 2019Q4

REPORT INFORMATION
  Report Type: Spontaneous
  Country: JP (occurrence: JP)
  Receive Date: 20191007
  Receipt Date: 20191007
  Transmission Date: 20200122
  Serious: Yes (Other)
  Sender: FDA-Public Use
  Company Number: JP-009507513-1910JPN000665J

PATIENT
  Age: 46 Year
  Sex: Male

DRUGS (8)
  1. SAMSCA [Suspect]
     Active Substance: TOLVAPTAN
     Indication: CONGENITAL CYSTIC KIDNEY DISEASE
     Dosage: 60 MILLIGRAM, BID
     Route: 048
     Dates: start: 20151112, end: 20160622
  2. NU-LOTAN [Suspect]
     Active Substance: LOSARTAN POTASSIUM
     Dosage: 37.5 MILLIGRAM, QD
     Route: 048
     Dates: start: 20170223, end: 20170329
  3. NU-LOTAN [Suspect]
     Active Substance: LOSARTAN POTASSIUM
     Dosage: 25 MILLIGRAM, QD
     Route: 048
     Dates: start: 20170330, end: 20170524
  4. NU-LOTAN [Suspect]
     Active Substance: LOSARTAN POTASSIUM
     Indication: HYPERTENSION
     Dosage: 12.5 MILLIGRAM, QD
     Route: 048
     Dates: start: 20160929, end: 20161116
  5. SAMSCA [Suspect]
     Active Substance: TOLVAPTAN
     Dosage: 75 MILLIGRAM, BID
     Route: 048
     Dates: start: 20170126
  6. SAMSCA [Suspect]
     Active Substance: TOLVAPTAN
     Dosage: 90 MILLIGRAM, BID
     Route: 048
     Dates: start: 20160623, end: 20160928
  7. SAMSCA [Suspect]
     Active Substance: TOLVAPTAN
     Dosage: 60 MILLIGRAM, BID
     Route: 048
     Dates: start: 20160929, end: 20170125
  8. NU-LOTAN [Suspect]
     Active Substance: LOSARTAN POTASSIUM
     Dosage: 25 MILLIGRAM, QD
     Route: 048
     Dates: start: 20161117, end: 20170222

REACTIONS (6)
  - Hepatic enzyme increased [Recovering/Resolving]
  - Blood alkaline phosphatase increased [Recovering/Resolving]
  - Gamma-glutamyltransferase increased [Recovering/Resolving]
  - Hyperuricaemia [Recovering/Resolving]
  - Hypernatraemia [Recovered/Resolved]
  - Gamma-glutamyltransferase increased [Recovering/Resolving]

NARRATIVE: CASE EVENT DATE: 20160929
